FAERS Safety Report 9814080 (Version 2)
Quarter: 2014Q1

REPORT INFORMATION
  Report Type: Spontaneous
  Country: US (occurrence: US)
  Receive Date: 20140113
  Receipt Date: 20140113
  Transmission Date: 20141002
  Serious: No
  Sender: FDA-Public Use
  Company Number: US-ASTELLAS-2013US011403

PATIENT
  Sex: Male
  Weight: 102 kg

DRUGS (4)
  1. MYRBETRIQ [Suspect]
     Indication: MICTURITION DISORDER
     Dosage: 25 MG, UID/QD
     Route: 048
     Dates: start: 20120228
  2. MYRBETRIQ [Suspect]
     Dosage: 50 MG, UID/QD
     Route: 048
     Dates: start: 201309
  3. PROSCAR [Concomitant]
     Indication: PROSTATIC DISORDER
     Dosage: UNK
     Route: 048
  4. ANTIHYPERTENSIVES [Concomitant]
     Indication: BLOOD PRESSURE INCREASED
     Dosage: UNK
     Route: 065

REACTIONS (1)
  - Drug ineffective [Unknown]
